FAERS Safety Report 9210684 (Version 2)
Quarter: 2013Q2

REPORT INFORMATION
  Report Type: Spontaneous
  Country: US (occurrence: US)
  Receive Date: 20130404
  Receipt Date: 20130424
  Transmission Date: 20140414
  Serious: No
  Sender: FDA-Public Use
  Company Number: US-PFIZER INC-2013106390

PATIENT
  Age: 44 Year
  Sex: Female
  Weight: 113.38 kg

DRUGS (15)
  1. LYRICA [Suspect]
     Indication: FIBROMYALGIA
     Dosage: 100 MG, 3X/DAY
     Route: 048
     Dates: end: 201303
  2. VITAMIN B12 [Concomitant]
     Dosage: UNK, MONTHLY
  3. ALLEGRA [Concomitant]
     Dosage: UNK, 1X/DAY
  4. TOPAMAX [Concomitant]
     Dosage: 250 MG, 1X/DAY
  5. BUPAP [Concomitant]
     Indication: MIGRAINE
     Dosage: UNK, 6X/DAY
  6. SEROQUEL [Concomitant]
     Dosage: 200 MG, 1X/DAY
  7. VERAPAMIL [Concomitant]
     Dosage: 120 MG, 1X/DAY
  8. KLONOPIN [Concomitant]
     Dosage: 1 MG, AS NEEDED
  9. SYMBICORT [Concomitant]
     Dosage: INHALER 160/4.5, UNK
  10. VITAMIN B3 (NICOTINIC ACID AMIDE) [Concomitant]
     Dosage: 3000 IU, 1X/DAY
  11. COUMADIN [Concomitant]
     Indication: PULMONARY THROMBOSIS
     Dosage: 5 MG, 1X/DAY
  12. AXERT [Concomitant]
     Indication: MIGRAINE
     Dosage: 6.25 MG, UNK
  13. DEXILANT [Concomitant]
     Dosage: 60 MG, 1X/DAY
  14. CYMBALTA [Concomitant]
     Dosage: 60 MG, 2X/DAY
  15. SINGULAIR [Concomitant]
     Dosage: 10 MG, 1X/DAY

REACTIONS (5)
  - Nasopharyngitis [Unknown]
  - Chills [Unknown]
  - Hyperhidrosis [Unknown]
  - Weight decreased [Unknown]
  - Pain [Unknown]
